FAERS Safety Report 14078017 (Version 1)
Quarter: 2017Q4

REPORT INFORMATION
  Report Type: Spontaneous
  Country: US (occurrence: None)
  Receive Date: 20171011
  Receipt Date: 20171011
  Transmission Date: 20180321
  Serious: No
  Sender: FDA-Public Use
  Company Number: None

PATIENT
  Age: 64 Year
  Sex: Female

DRUGS (1)
  1. TYMLOS [Suspect]
     Active Substance: ABALOPARATIDE

REACTIONS (4)
  - Burning sensation [None]
  - Injection site pain [None]
  - Myalgia [None]
  - Muscle spasms [None]

NARRATIVE: CASE EVENT DATE: 20171010
